FAERS Safety Report 14716191 (Version 5)
Quarter: 2022Q1

REPORT INFORMATION
  Report Type: Spontaneous
  Country: US (occurrence: None)
  Receive Date: 20180404
  Receipt Date: 20220322
  Transmission Date: 20220423
  Serious: Yes (Hospitalization, Other)
  Sender: FDA-Public Use
  Company Number: 2018SE41429

PATIENT
  Age: 67 Year
  Sex: Male

DRUGS (43)
  1. NEXIUM [Suspect]
     Active Substance: ESOMEPRAZOLE MAGNESIUM
     Route: 048
     Dates: start: 199901, end: 201301
  2. NEXIUM 24HR [Suspect]
     Active Substance: ESOMEPRAZOLE MAGNESIUM
     Route: 048
     Dates: start: 199901, end: 201301
  3. PRILOSEC [Suspect]
     Active Substance: OMEPRAZOLE MAGNESIUM
     Indication: Gastrooesophageal reflux disease
     Route: 065
     Dates: start: 199901, end: 201301
  4. PRILOSEC [Suspect]
     Active Substance: OMEPRAZOLE MAGNESIUM
     Indication: Gastrooesophageal reflux disease
     Route: 048
     Dates: start: 20100101, end: 20131231
  5. PRILOSEC [Suspect]
     Active Substance: OMEPRAZOLE MAGNESIUM
     Indication: Gastrooesophageal reflux disease
     Route: 048
     Dates: start: 20040506, end: 20150210
  6. PRILOSEC [Suspect]
     Active Substance: OMEPRAZOLE MAGNESIUM
     Indication: Gastrooesophageal reflux disease
     Dosage: GENERIC
     Route: 065
     Dates: start: 20071127
  7. PRILOSEC [Suspect]
     Active Substance: OMEPRAZOLE MAGNESIUM
     Indication: Gastrooesophageal reflux disease
     Dosage: GENERIC
     Route: 065
     Dates: start: 20150422, end: 20151022
  8. PRILOSEC OTC [Suspect]
     Active Substance: OMEPRAZOLE MAGNESIUM
     Indication: Gastrooesophageal reflux disease
     Route: 048
     Dates: start: 199901, end: 201301
  9. PRILOSEC OTC [Suspect]
     Active Substance: OMEPRAZOLE MAGNESIUM
     Indication: Gastrooesophageal reflux disease
     Route: 048
     Dates: start: 2003, end: 2015
  10. DEXILANT [Suspect]
     Active Substance: DEXLANSOPRAZOLE
     Route: 065
     Dates: start: 199901, end: 201301
  11. PREVACID [Suspect]
     Active Substance: LANSOPRAZOLE
     Indication: Gastrooesophageal reflux disease
     Route: 065
     Dates: start: 199901, end: 201301
  12. PREVACID 24 HR [Suspect]
     Active Substance: LANSOPRAZOLE
     Indication: Gastrooesophageal reflux disease
     Route: 065
     Dates: start: 199901, end: 201301
  13. PROTONIX [Suspect]
     Active Substance: PANTOPRAZOLE SODIUM
     Route: 065
     Dates: start: 199901, end: 201301
  14. DILTIAZEM [Concomitant]
     Active Substance: DILTIAZEM
  15. GLIPIZIDE [Concomitant]
     Active Substance: GLIPIZIDE
  16. LIDOCAINE [Concomitant]
     Active Substance: LIDOCAINE
  17. METOPROLOL [Concomitant]
     Active Substance: METOPROLOL
  18. LISINOPRIL [Concomitant]
     Active Substance: LISINOPRIL
  19. LOSARTAN [Concomitant]
     Active Substance: LOSARTAN
  20. ONDANSETRON [Concomitant]
     Active Substance: ONDANSETRON
  21. ASPIRIN [Concomitant]
     Active Substance: ASPIRIN
  22. SIMVASTATIN [Concomitant]
     Active Substance: SIMVASTATIN
  23. FUROSEMIDE [Concomitant]
     Active Substance: FUROSEMIDE
  24. TYLENOL [Concomitant]
     Active Substance: ACETAMINOPHEN
     Indication: Arthralgia
     Dates: start: 1999
  25. ACETAMINOPHEN [Concomitant]
     Active Substance: ACETAMINOPHEN
     Indication: Headache
     Dates: start: 1999
  26. PEPCID AC [Concomitant]
     Active Substance: FAMOTIDINE
     Dates: start: 2008, end: 2012
  27. ZANTAC [Concomitant]
     Active Substance: RANITIDINE HYDROCHLORIDE
     Dates: start: 2017, end: 2018
  28. ZANTAC [Concomitant]
     Active Substance: RANITIDINE HYDROCHLORIDE
     Dates: start: 2014
  29. TUMS [Concomitant]
     Active Substance: CALCIUM CARBONATE
     Dates: start: 2000
  30. PEPTO-BISMOL [Concomitant]
     Active Substance: BISMUTH SUBSALICYLATE
     Dates: start: 2014
  31. ROLAIDS [Concomitant]
     Active Substance: CALCIUM CARBONATE\MAGNESIUM HYDROXIDE
     Dates: start: 2008, end: 2015
  32. TAGAMET HB [Concomitant]
     Active Substance: CIMETIDINE
  33. GAVISCON [Concomitant]
     Active Substance: ALUMINUM HYDROXIDE\MAGNESIUM CARBONATE
     Dates: start: 2016, end: 2017
  34. MAALOX ANTACID [Concomitant]
     Active Substance: ALUMINUM HYDROXIDE\DIMETHICONE\MAGNESIUM HYDROXIDE
     Dates: start: 2000, end: 2008
  35. MYLANTA [Concomitant]
     Active Substance: ALUMINUM HYDROXIDE\DIMETHICONE\MAGNESIUM HYDROXIDE
     Dates: start: 2008, end: 2010
  36. ALBUTEROL [Concomitant]
     Active Substance: ALBUTEROL
  37. ALFUZOSIN [Concomitant]
     Active Substance: ALFUZOSIN
  38. APIXABAN [Concomitant]
     Active Substance: APIXABAN
  39. FLUTICASONE [Concomitant]
     Active Substance: FLUTICASONE
  40. FUROSEMIDE [Concomitant]
     Active Substance: FUROSEMIDE
  41. IPRATROPIUM BROMIDE [Concomitant]
     Active Substance: IPRATROPIUM BROMIDE
  42. OXYCODONE [Concomitant]
     Active Substance: OXYCODONE
  43. LORATADINE [Concomitant]
     Active Substance: LORATADINE

REACTIONS (4)
  - Acute kidney injury [Unknown]
  - Chronic kidney disease [Unknown]
  - Renal failure [Not Recovered/Not Resolved]
  - Renal injury [Unknown]

NARRATIVE: CASE EVENT DATE: 20080101
